FAERS Safety Report 5384354-8 (Version None)
Quarter: 2007Q3

REPORT INFORMATION
  Report Type: 
  Country: None (occurrence: None)
  Receive Date: 20070710
  Receipt Date: 20070216
  Transmission Date: 20080115
  Serious: Yes (Hospitalization, Other)
  Sender: FDA-Public Use
  Company Number: 2006-02388

PATIENT
  Age: 68 Year
  Sex: Female
  Weight: 54 kg

DRUGS (20)
  1. VELCADE [Suspect]
     Indication: MULTIPLE MYELOMA
     Dosage: 1.30 MG/M2
     Dates: start: 20060823, end: 20060830
  2. FUROSEMIDE [Concomitant]
  3. COREG [Concomitant]
  4. TRAZODONE HCL [Concomitant]
  5. ALENDRONATE SODIUM [Concomitant]
  6. COLACE (DOCUSATE SODIUM) [Concomitant]
  7. SENNA (SENNA) [Concomitant]
  8. COUMADIN [Concomitant]
  9. PRILOSEC [Concomitant]
  10. PAROXETINE HCL [Concomitant]
  11. FOLC ACID (FOLIC ACID) [Concomitant]
  12. TYLENOL W/ CODEINE NO. 3 [Concomitant]
  13. RIZATRIPTAN BENZOATE (RIZATRIPTRAN BENZOATE) [Concomitant]
  14. MULTIVITAMINS (ERGOCALCIFEROL, PANTHENOL, NICOTINAMIDE, RIBOFLAVIN, TH [Concomitant]
  15. ACETAMINOPHEN [Concomitant]
  16. DEXAMETHASONE 0.5MG TAB [Concomitant]
  17. CLONIDINE [Concomitant]
  18. PLAVIX [Concomitant]
  19. VITAMIN E (TOCOPHERYL ACETATE) [Concomitant]
  20. ASCORBIC ACID [Concomitant]

REACTIONS (10)
  - ATRIAL FIBRILLATION [None]
  - DEEP VEIN THROMBOSIS [None]
  - HYPOKALAEMIA [None]
  - HYPOMAGNESAEMIA [None]
  - PLEURISY [None]
  - PNEUMONIA [None]
  - PULMONARY EMBOLISM [None]
  - PULMONARY OEDEMA [None]
  - PYREXIA [None]
  - URINARY TRACT INFECTION [None]
